FAERS Safety Report 23723871 (Version 2)
Quarter: 2024Q2

REPORT INFORMATION
  Report Type: Spontaneous
  Country: US (occurrence: US)
  Receive Date: 20240409
  Receipt Date: 20240425
  Transmission Date: 20240716
  Serious: No
  Sender: FDA-Public Use
  Company Number: US-ALKERMES INC.-ALK-2024-000953

PATIENT
  Age: 30 Year
  Sex: Male
  Weight: 68.027 kg

DRUGS (1)
  1. VIVITROL [Suspect]
     Active Substance: NALTREXONE
     Indication: Alcoholism
     Dosage: 380 MILLIGRAM, QMO
     Route: 030
     Dates: start: 20240209

REACTIONS (2)
  - Humerus fracture [Unknown]
  - Accident [Unknown]

NARRATIVE: CASE EVENT DATE: 20240331
